FAERS Safety Report 18798786 (Version 1)
Quarter: 2021Q1

REPORT INFORMATION
  Report Type: Spontaneous
  Country: US (occurrence: US)
  Receive Date: 20210127
  Receipt Date: 20210127
  Transmission Date: 20210419
  Serious: Yes (Death, Hospitalization)
  Sender: FDA-Public Use
  Company Number: None

PATIENT
  Age: 74 Year
  Sex: Male

DRUGS (1)
  1. CHOLECALCIFEROL (VITAMIN D?3) 50,000IU [Suspect]
     Active Substance: CHOLECALCIFEROL
     Route: 048

REACTIONS (3)
  - Disease progression [None]
  - Condition aggravated [None]
  - Dyspnoea [None]

NARRATIVE: CASE EVENT DATE: 20210117
